FAERS Safety Report 7457487-X (Version None)
Quarter: 2011Q2

REPORT INFORMATION
  Report Type: 
  Country: None (occurrence: None)
  Receive Date: 20110502
  Receipt Date: 20110502
  Transmission Date: 20111010
  Serious: Yes (Hospitalization, Disabling, Other)
  Sender: FDA-Public Use
  Company Number: None

PATIENT
  Age: 63 Year
  Sex: Female
  Weight: 70.3075 kg

DRUGS (1)
  1. LEVOXYL [Suspect]
     Indication: HYPOTHYROIDISM
     Dosage: .088 MG DAILY ORAL
     Route: 048
     Dates: start: 20101123, end: 20101201

REACTIONS (9)
  - DIZZINESS [None]
  - NAUSEA [None]
  - PRODUCT TAMPERING [None]
  - INFLUENZA [None]
  - PANIC ATTACK [None]
  - MENTAL STATUS CHANGES [None]
  - HYPOPHAGIA [None]
  - SUICIDAL IDEATION [None]
  - ABDOMINAL PAIN [None]
